FAERS Safety Report 4841946-X (Version None)
Quarter: 2005Q4

REPORT INFORMATION
  Report Type: 
  Country: None (occurrence: None)
  Receive Date: 20051130
  Receipt Date: 20051010
  Transmission Date: 20060501
  Serious: No
  Sender: FDA-Public Use
  Company Number: US-GLAXOSMITHKLINE-A0577710A

PATIENT
  Age: 63 Year
  Sex: Female

DRUGS (4)
  1. WELLBUTRIN XL [Suspect]
     Indication: DEPRESSION
     Dosage: 150MG PER DAY
     Route: 048
     Dates: start: 20051006
  2. GLUCOVANCE [Concomitant]
  3. DILTIAZEM HCL [Concomitant]
  4. BENICAR [Concomitant]

REACTIONS (1)
  - INSOMNIA [None]
